FAERS Safety Report 5170593-8 (Version None)
Quarter: 2006Q4

REPORT INFORMATION
  Report Type: 
  Country: None (occurrence: None)
  Receive Date: 20061205
  Receipt Date: 20061121
  Transmission Date: 20070319
  Serious: Yes (Other)
  Sender: FDA-Public Use
  Company Number: 2006145760

PATIENT
  Age: 79 Year
  Sex: Female
  Weight: 54 kg

DRUGS (3)
  1. ATORVASTATIN CALCIUM [Suspect]
     Indication: HYPERCHOLESTEROLAEMIA
     Dosage: 10 MG (10 MG, 1 IN 2 D), ORAL
     Route: 048
     Dates: end: 20061121
  2. CARVEDILOL HYDROCHLORIDE (CARVEDILOL HYDROCHLORIDE) [Concomitant]
  3. LOVENOX [Concomitant]

REACTIONS (8)
  - ABDOMINAL DISTENSION [None]
  - CEREBROVASCULAR ACCIDENT [None]
  - DRY SKIN [None]
  - ENTERITIS [None]
  - GASTRITIS [None]
  - GLOSSITIS [None]
  - LIP DRY [None]
  - OESOPHAGITIS [None]
